FAERS Safety Report 9225701 (Version 1)
Quarter: 2013Q2

REPORT INFORMATION
  Report Type: Spontaneous
  Country: US (occurrence: None)
  Receive Date: 20130410
  Receipt Date: 20130410
  Transmission Date: 20140414
  Serious: Yes (Hospitalization)
  Sender: FDA-Public Use
  Company Number: None

PATIENT
  Age: 85 Year
  Sex: Female
  Weight: 55 kg

DRUGS (19)
  1. DILAUDID [Suspect]
     Indication: PAIN
     Dosage: 0.5MG ONCE IV
     Route: 042
  2. DILAUDID [Suspect]
     Dosage: 1MG ONCE IV
     Route: 042
  3. FISH OIL [Concomitant]
  4. NTG [Concomitant]
  5. CA [Concomitant]
  6. MG [Concomitant]
  7. PLAVIX [Concomitant]
  8. OMEPRAZOLE [Concomitant]
  9. LASIX [Concomitant]
  10. KCL [Concomitant]
  11. VITB12 [Concomitant]
  12. OXYODONE [Concomitant]
  13. LOVASTATIN [Concomitant]
  14. AMBIEN [Concomitant]
  15. ZOLOFT [Concomitant]
  16. GABAPENTIN [Concomitant]
  17. VIT D [Concomitant]
  18. FISH OIL [Concomitant]
  19. ARTIFICIAL TEARS [Concomitant]

REACTIONS (10)
  - Nausea [None]
  - Vomiting [None]
  - Pneumonia [None]
  - Cardiac failure congestive [None]
  - Syncope [None]
  - Eye movement disorder [None]
  - Respiratory rate decreased [None]
  - Confusional state [None]
  - Refusal of treatment by relative [None]
  - Myelodysplastic syndrome [None]
